FAERS Safety Report 5226455-0 (Version None)
Quarter: 2007Q1

REPORT INFORMATION
  Report Type: 
  Country: None (occurrence: None)
  Receive Date: 20061201
  Receipt Date: 20060918
  Transmission Date: 20070707
  Serious: No
  Sender: FDA-Public Use
  Company Number: US200609004509

PATIENT
  Age: 33 Year
  Sex: Female

DRUGS (5)
  1. CYMBALTA [Suspect]
     Indication: NEURALGIA
     Dosage: 60 MG
     Dates: start: 20060317
  2. PREGABALIN (PREGABALIN) [Concomitant]
  3. ESZOPICLONE (ESZOPICLONE) [Concomitant]
  4. LIDODERM [Concomitant]
  5. NEURONTIN [Concomitant]

REACTIONS (1)
  - DRUG EXPOSURE DURING PREGNANCY [None]
